FAERS Safety Report 5490728-7 (Version None)
Quarter: 2007Q4

REPORT INFORMATION
  Report Type: 
  Country: None (occurrence: None)
  Receive Date: 20071019
  Receipt Date: 20071012
  Transmission Date: 20080405
  Serious: Yes (Hospitalization)
  Sender: FDA-Public Use
  Company Number: B0486529A

PATIENT
  Age: 42 Year
  Sex: Female
  Weight: 56 kg

DRUGS (11)
  1. ARIXTRA [Suspect]
     Indication: THROMBOSIS PROPHYLAXIS
     Dosage: 2.5MG PER DAY
     Route: 058
     Dates: start: 20070822, end: 20070828
  2. LORCAM [Concomitant]
     Indication: APPLICATION SITE PAIN
     Route: 048
     Dates: start: 20070822, end: 20070903
  3. LIVALO [Concomitant]
     Route: 048
  4. OLMETEC [Concomitant]
     Route: 048
  5. THEOPHYLLINE [Concomitant]
  6. ZYLORIC [Concomitant]
     Route: 048
  7. LORAZEPAM [Concomitant]
     Route: 048
  8. DIGOXIN SEMI [Concomitant]
     Route: 048
  9. MUCOSTA [Concomitant]
     Route: 048
  10. THYRADIN [Concomitant]
     Route: 048
  11. LANSOPRAZOLE [Concomitant]
     Dates: start: 20070905

REACTIONS (5)
  - GASTROINTESTINAL HAEMORRHAGE [None]
  - GASTROINTESTINAL ULCER [None]
  - HAEMOGLOBIN DECREASED [None]
  - POST PROCEDURAL HAEMATOMA [None]
  - SUBCUTANEOUS HAEMATOMA [None]
